FAERS Safety Report 24355472 (Version 1)
Quarter: 2024Q3

REPORT INFORMATION
  Report Type: Spontaneous
  Country: GB (occurrence: GB)
  Receive Date: 20240924
  Receipt Date: 20240924
  Transmission Date: 20241017
  Serious: Yes (Other)
  Sender: AZURITY PHARMACEUTICALS
  Company Number: GB-AZURITY PHARMACEUTICALS, INC.-AZR202407-000662

PATIENT
  Age: 83 Year

DRUGS (9)
  1. TRIPTORELIN [Suspect]
     Active Substance: TRIPTORELIN
     Indication: Product used for unknown indication
     Dosage: 1 DOSAGE FORM IN 6 MONTH
     Route: 065
  2. TAMSULOSIN [Concomitant]
     Active Substance: TAMSULOSIN
     Indication: Product used for unknown indication
     Dosage: (400 MICROGRAM(S), IN 1 DAY)
     Route: 065
  3. SERTRALINE [Concomitant]
     Active Substance: SERTRALINE HYDROCHLORIDE
     Indication: Product used for unknown indication
     Dosage: (100 MILLIGRAM(S), IN 1 DAY)
     Route: 065
  4. SERTRALINE [Concomitant]
     Active Substance: SERTRALINE HYDROCHLORIDE
     Dosage: (50 MILLIGRAM(S), IN 1 DAY)
     Route: 065
  5. BISACODYL [Concomitant]
     Active Substance: BISACODYL
     Indication: Product used for unknown indication
     Dosage: (5 MILLIGRAM, IN 1 DAY) AT NIGHT
     Route: 065
  6. SODIUM PHOSPHATE, DIBASIC, DODECAHYDRATE\SODIUM PHOSPHATE, MONOBASIC [Concomitant]
     Active Substance: SODIUM PHOSPHATE, DIBASIC, DODECAHYDRATE\SODIUM PHOSPHATE, MONOBASIC
     Indication: Product used for unknown indication
     Dosage: 133 ML ENEMA AS DIRECTED
     Route: 054
  7. POLYETHYLENE GLYCOLS [Concomitant]
     Active Substance: POLYETHYLENE GLYCOLS
     Indication: Product used for unknown indication
     Dosage: ORAL POWDER SACHETS NPF SUGAR FREE 2 SACHETS WITH WATER EVERY 2 HRS TO A MAXIMUM OF 8 IN 24 HRS- TAK
     Route: 048
  8. NYSTATIN [Concomitant]
     Active Substance: NYSTATIN
     Indication: Product used for unknown indication
     Dosage: (1 MILLILITRE(S), IN 6 HOUR)100,000 UNITS / ML ORAL SUSPENSION
     Route: 065
  9. ENSURE [Concomitant]
     Active Substance: AMINO ACIDS\DEXTROSE\ELECTROLYTES NOS\SOYBEAN OIL\VITAMINS
     Indication: Product used for unknown indication
     Dosage: (1 DOSAGE FORM, IN 12 HOUR)
     Route: 065

REACTIONS (4)
  - Hypogonadism [Unknown]
  - Depression [Unknown]
  - Micropenis [Unknown]
  - Libido decreased [Unknown]
